FAERS Safety Report 11185000 (Version 1)
Quarter: 2015Q2

REPORT INFORMATION
  Report Type: Spontaneous
  Country: US (occurrence: None)
  Receive Date: 20150611
  Receipt Date: 20150611
  Transmission Date: 20150821
  Serious: Yes (Life-Threatening, Hospitalization, Disabling, Other)
  Sender: FDA-Public Use
  Company Number: None

PATIENT
  Age: 47 Year
  Sex: Female
  Weight: 63.5 kg

DRUGS (8)
  1. LOVENOX [Concomitant]
     Active Substance: ENOXAPARIN SODIUM
  2. BETA BLOCKER [Concomitant]
     Active Substance: UNSPECIFIED INGREDIENT
  3. ANGIOTENSION II BLOCKER [Concomitant]
  4. MULTI VITAMIN [Concomitant]
     Active Substance: VITAMINS
  5. KERANIQUE FOR WOMEN HAIR REGROWTH TREATMENT [Suspect]
     Active Substance: MINOXIDIL
     Indication: HAIR GROWTH ABNORMAL
     Dosage: APPLY 1 ML W DROPPER, DIRECTLY TO THE SCALP
     Dates: start: 20150101, end: 20150124
  6. PLAVIX [Concomitant]
     Active Substance: CLOPIDOGREL BISULFATE
  7. STATIN [Concomitant]
     Active Substance: UNSPECIFIED INGREDIENT
  8. NITROSTAT [Concomitant]
     Active Substance: NITROGLYCERIN

REACTIONS (1)
  - Myocardial infarction [None]

NARRATIVE: CASE EVENT DATE: 20150124
